FAERS Safety Report 7502607-1 (Version None)
Quarter: 2011Q2

REPORT INFORMATION
  Report Type: 
  Country: None (occurrence: None)
  Receive Date: 20110524
  Receipt Date: 20110524
  Transmission Date: 20111010
  Serious: Yes (Other)
  Sender: FDA-Public Use
  Company Number: None

PATIENT
  Sex: Female
  Weight: 105.6881 kg

DRUGS (2)
  1. TOPIRAMATE [Suspect]
     Indication: MIGRAINE PROPHYLAXIS
     Dosage: 25MG 2X DAY PO
     Route: 048
     Dates: start: 20110522, end: 20110523
  2. TOPIRAMATE [Suspect]
     Indication: MIGRAINE PROPHYLAXIS
     Dosage: 25MG 2 X DAY PO
     Route: 048
     Dates: start: 20110522, end: 20110523

REACTIONS (7)
  - PRODUCT ODOUR ABNORMAL [None]
  - PRODUCT QUALITY ISSUE [None]
  - NAUSEA [None]
  - IRRITABILITY [None]
  - MIGRAINE [None]
  - FATIGUE [None]
  - ANXIETY [None]
